FAERS Safety Report 21334046 (Version 1)
Quarter: 2022Q3

REPORT INFORMATION
  Report Type: Spontaneous
  Country: US (occurrence: US)
  Receive Date: 20220914
  Receipt Date: 20220914
  Transmission Date: 20221027
  Serious: No
  Sender: FDA-Public Use
  Company Number: US-LANNETT COMPANY, INC.-US-2021LAN000381

PATIENT
  Sex: Male

DRUGS (1)
  1. LACTULOSE [Suspect]
     Active Substance: LACTULOSE
     Indication: Malnutrition
     Dosage: 20-30 MILLILITRE
     Route: 048
     Dates: start: 20211128

REACTIONS (3)
  - Nausea [Unknown]
  - Product use complaint [Unknown]
  - Product colour issue [Unknown]
